FAERS Safety Report 5907242-4 (Version None)
Quarter: 2008Q4

REPORT INFORMATION
  Report Type: 
  Country: None (occurrence: None)
  Receive Date: 20081003
  Receipt Date: 20080924
  Transmission Date: 20090506
  Serious: Yes (Other)
  Sender: FDA-Public Use
  Company Number: PHEH2008US08546

PATIENT
  Sex: Female
  Weight: 32.653 kg

DRUGS (6)
  1. ZOMETA [Suspect]
     Indication: OSTEOPOROSIS
     Dosage: 4 MG, ONCE/SINGLE
     Route: 042
     Dates: start: 20080812
  2. VITAMIN D [Concomitant]
  3. ASPIRIN [Concomitant]
     Dosage: 81 MG, UNK
  4. CITRACAL [Concomitant]
  5. TYLENOL (CAPLET) [Concomitant]
     Dosage: UNK
  6. SYSTANE (PROPYLENE GLYCOL/MACROGOL) [Concomitant]

REACTIONS (5)
  - AMNESIA [None]
  - BLOOD PARATHYROID HORMONE INCREASED [None]
  - CONFUSIONAL STATE [None]
  - DELIRIUM [None]
  - VITAMIN D [None]
